FAERS Safety Report 5517352-1 (Version None)
Quarter: 2007Q4

REPORT INFORMATION
  Report Type: 
  Country: None (occurrence: None)
  Receive Date: 20071114
  Receipt Date: 20071030
  Transmission Date: 20080405
  Serious: Yes (Other)
  Sender: FDA-Public Use
  Company Number: CH-AMGEN-US241655

PATIENT
  Age: 49 Year
  Sex: Female

DRUGS (4)
  1. ENBREL [Suspect]
     Indication: DRUG USE FOR UNKNOWN INDICATION
     Route: 065
     Dates: start: 20070701, end: 20070801
  2. DALMADORM [Concomitant]
     Route: 048
  3. NOVALGIN [Concomitant]
     Dosage: 1 DOSE EVERY 1 PRN
  4. SALICYLIC ACID [Concomitant]
     Indication: PAIN
     Route: 048

REACTIONS (1)
  - CYTOLYTIC HEPATITIS [None]
